FAERS Safety Report 6028857-1 (Version None)
Quarter: 2008Q4

REPORT INFORMATION
  Report Type: 
  Country: None (occurrence: None)
  Receive Date: 20081231
  Receipt Date: 20081222
  Transmission Date: 20090506
  Serious: Yes (Other)
  Sender: FDA-Public Use
  Company Number: 2008EN000194

PATIENT
  Age: 53 Year
  Sex: Female

DRUGS (1)
  1. ABELCET [Suspect]
     Indication: FUNGAL INFECTION
     Dosage: 225 MG; QD; IV
     Route: 042
     Dates: start: 20081008

REACTIONS (2)
  - HYPERTENSION [None]
  - TREMOR [None]
